FAERS Safety Report 20660771 (Version 4)
Quarter: 2023Q1

REPORT INFORMATION
  Report Type: Spontaneous
  Country: US (occurrence: US)
  Receive Date: 20220331
  Receipt Date: 20230214
  Transmission Date: 20230417
  Serious: Yes (Other)
  Sender: FDA-Public Use
  Company Number: US-PFIZER INC-202101218762

PATIENT
  Age: 47 Year
  Sex: Female

DRUGS (6)
  1. IBRANCE [Suspect]
     Active Substance: PALBOCICLIB
     Indication: Neoplasm malignant
     Dosage: 125 MG, CYCLIC (FOR 21 DAYS ON THEN 7 DAYS OFF (1 IN 1 ONCE))
     Dates: start: 2017
  2. IBRANCE [Suspect]
     Active Substance: PALBOCICLIB
     Dosage: 125 MG, CYCLIC ( DOSE DECREASED, ONES A DAILY FOR 21 DAYS ON THEN 7 DAYS OFF)
     Dates: start: 20210430
  3. IBRANCE [Suspect]
     Active Substance: PALBOCICLIB
     Dosage: 100 MG
  4. LUPRON DEPOT [Suspect]
     Active Substance: LEUPROLIDE ACETATE
     Indication: Menopause
     Dosage: 3.7 MG, CYCLIC (21 DAYS ON THEN 7 DAYS OFF)
     Dates: start: 201704, end: 202010
  5. XGEVA [Concomitant]
     Active Substance: DENOSUMAB
     Dosage: UNK, EVERY 3 MONTHS (UNKNOWN DOSE VIA INJECTION EVERY 3 MONTHS)
     Dates: start: 2017
  6. LETROZOLE [Concomitant]
     Active Substance: LETROZOLE
     Indication: Neoplasm malignant
     Dosage: 2.5 MG, DAILY (BY MOUTH EVERY DAY WITH NO INTERRUPTION)
     Route: 048
     Dates: start: 2017

REACTIONS (16)
  - Diabetes mellitus [Unknown]
  - Neoplasm progression [Unknown]
  - Skin abrasion [Recovering/Resolving]
  - Sensitive skin [Recovering/Resolving]
  - Toothache [Recovering/Resolving]
  - Mastication disorder [Recovering/Resolving]
  - Amenorrhoea [Unknown]
  - Arthralgia [Recovering/Resolving]
  - Malaise [Recovering/Resolving]
  - Fatigue [Unknown]
  - Headache [Unknown]
  - Hot flush [Unknown]
  - Weight increased [Unknown]
  - Palpitations [Unknown]
  - Oestradiol decreased [Unknown]
  - Nausea [Unknown]

NARRATIVE: CASE EVENT DATE: 20170101
